FAERS Safety Report 13904636 (Version 1)
Quarter: 2017Q3

REPORT INFORMATION
  Report Type: Spontaneous
  Country: US (occurrence: None)
  Receive Date: 20170819
  Receipt Date: 20170819
  Transmission Date: 20171127
  Serious: Yes (Hospitalization)
  Sender: FDA-Public Use
  Company Number: None

PATIENT
  Sex: Male

DRUGS (14)
  1. TAMSULOSIN [Concomitant]
     Active Substance: TAMSULOSIN
  2. CLINDAMYCIN. [Concomitant]
     Active Substance: CLINDAMYCIN
  3. RANITIDINE. [Concomitant]
     Active Substance: RANITIDINE
  4. VITAMIN D3 [Concomitant]
     Active Substance: CHOLECALCIFEROL
  5. DICLOFENAC [Concomitant]
     Active Substance: DICLOFENAC
  6. METFORMIN [Concomitant]
     Active Substance: METFORMIN HYDROCHLORIDE
  7. ACETAMIN [Concomitant]
     Active Substance: ACETAMINOPHEN
  8. FISH OIL [Concomitant]
     Active Substance: FISH OIL
  9. CEPHALEXIN. [Concomitant]
     Active Substance: CEPHALEXIN
  10. GLIPIZIDE. [Concomitant]
     Active Substance: GLIPIZIDE
  11. ENBREL [Suspect]
     Active Substance: ETANERCEPT
     Indication: RHEUMATOID ARTHRITIS
     Route: 058
     Dates: start: 20130327
  12. CANDESARTAN. [Concomitant]
     Active Substance: CANDESARTAN
  13. ATORVASTATIN [Concomitant]
     Active Substance: ATORVASTATIN
  14. ALLOPURINOL. [Concomitant]
     Active Substance: ALLOPURINOL

REACTIONS (2)
  - Malaise [None]
  - Groin infection [None]
